FAERS Safety Report 19771940 (Version 2)
Quarter: 2021Q3

REPORT INFORMATION
  Report Type: Report from Study
  Country: ES (occurrence: ES)
  Receive Date: 20210901
  Receipt Date: 20210916
  Transmission Date: 20211014
  Serious: Yes (Other)
  Sender: FDA-Public Use
  Company Number: ES-PFIZER INC-202101084546

PATIENT
  Age: 65 Year
  Sex: Female

DRUGS (8)
  1. CLONAZEPAM. [Interacting]
     Active Substance: CLONAZEPAM
     Indication: TREMOR
     Dosage: UNK
  2. PERAMPANEL [Interacting]
     Active Substance: PERAMPANEL
     Dosage: 2 MG, 1X/DAY
  3. LORAZEPAM. [Interacting]
     Active Substance: LORAZEPAM
     Indication: TREMOR
     Dosage: UNK
  4. PERAMPANEL [Interacting]
     Active Substance: PERAMPANEL
     Dosage: 4 MG, 1X/DAY
  5. GABAPENTIN. [Suspect]
     Active Substance: GABAPENTIN
     Indication: ORTHOSTATIC TREMOR
     Dosage: UNK
  6. PERAMPANEL [Interacting]
     Active Substance: PERAMPANEL
     Indication: ORTHOSTATIC TREMOR
     Dosage: 2 MG, 1X/DAY
  7. PREGABALIN. [Interacting]
     Active Substance: PREGABALIN
     Indication: TREMOR
     Dosage: UNK
  8. OXYCODONE [Interacting]
     Active Substance: OXYCODONE
     Indication: TREMOR
     Dosage: UNK

REACTIONS (8)
  - Weight increased [Unknown]
  - Drug interaction [Unknown]
  - Depression [Unknown]
  - Balance disorder [Unknown]
  - Gait disturbance [Unknown]
  - Dizziness [Unknown]
  - Off label use [Unknown]
  - Drug tolerance decreased [Unknown]
